FAERS Safety Report 9867279 (Version 1)
Quarter: 2014Q1

REPORT INFORMATION
  Report Type: Spontaneous
  Country: RU (occurrence: RU)
  Receive Date: 20140204
  Receipt Date: 20140204
  Transmission Date: 20141002
  Serious: Yes (Other)
  Sender: FDA-Public Use
  Company Number: RU-JNJFOC-20140118604

PATIENT
  Age: 11 Year
  Sex: Female

DRUGS (2)
  1. TOPAMAX [Suspect]
     Indication: PRODUCT USED FOR UNKNOWN INDICATION
     Route: 048
  2. CONVULEX (VALPROIC ACID) [Concomitant]
     Route: 065

REACTIONS (5)
  - Psychomotor hyperactivity [Recovered/Resolved]
  - Weight decreased [Recovered/Resolved]
  - Dyspepsia [Recovered/Resolved]
  - Affect lability [Recovered/Resolved]
  - Headache [Recovered/Resolved]
